FAERS Safety Report 5380485-7 (Version None)
Quarter: 2007Q3

REPORT INFORMATION
  Report Type: 
  Country: None (occurrence: None)
  Receive Date: 20070706
  Receipt Date: 20070601
  Transmission Date: 20080115
  Serious: No
  Sender: FDA-Public Use
  Company Number: A0653837A

PATIENT
  Age: 45 Year
  Sex: Female

DRUGS (2)
  1. TYKERB [Suspect]
     Indication: BREAST CANCER
     Dosage: 1250MG PER DAY
     Route: 048
     Dates: start: 20070531
  2. XELODA [Concomitant]
     Route: 048
     Dates: start: 20070531

REACTIONS (1)
  - VOMITING [None]
